FAERS Safety Report 5966165-5 (Version None)
Quarter: 2008Q4

REPORT INFORMATION
  Report Type: 
  Country: None (occurrence: None)
  Receive Date: 20081125
  Receipt Date: 20081117
  Transmission Date: 20090506
  Serious: Yes (Hospitalization)
  Sender: FDA-Public Use
  Company Number: FR-ROCHE-597421

PATIENT
  Sex: Male

DRUGS (12)
  1. RIVOTRIL [Suspect]
     Indication: STATUS EPILEPTICUS
     Dosage: DOSE FORM:INJECTABLE SOLUTION. LOADING DOSE 0.05MG/KG FOLLOWED BY 0.01 MG/KG FOR SEVERAL HOURS.
     Route: 042
     Dates: start: 20080818, end: 20080818
  2. DEPAKENE [Concomitant]
     Dosage: INDICATION: PHARMACO-RESISTANT EPILEPTIC ENCEPHALOPATHY
  3. DEPAKENE [Concomitant]
     Dosage: IN THE AFTERNOON DOSE WAS INCREASED.
     Dates: start: 20080818
  4. DEPAKENE [Concomitant]
  5. SABRIL [Concomitant]
     Indication: EPILEPSY
     Dosage: INDICATION: WEST SYNDROME
  6. VALIUM [Concomitant]
     Dates: start: 20080817
  7. VALIUM [Concomitant]
     Dosage: GIVEN IN THE MORNING.
  8. AUGMENTIN '125' [Concomitant]
     Dates: start: 20080818
  9. RULID [Concomitant]
     Dates: start: 20080818
  10. DOLIPRANE [Concomitant]
     Dates: start: 20080817
  11. AMOXICILLIN [Concomitant]
     Dates: start: 20080818
  12. FLAGYL [Concomitant]
     Dates: start: 20080818

REACTIONS (3)
  - DRUG INEFFECTIVE [None]
  - ENDOTRACHEAL INTUBATION [None]
  - INCREASED BRONCHIAL SECRETION [None]
